FAERS Safety Report 7948129-5 (Version None)
Quarter: 2011Q4

REPORT INFORMATION
  Report Type: 
  Country: None (occurrence: None)
  Receive Date: 20111130
  Receipt Date: 20111118
  Transmission Date: 20120403
  Serious: Yes (Hospitalization)
  Sender: FDA-Public Use
  Company Number: TH-JNJFOC-20111109007

PATIENT
  Sex: Male
  Weight: 52 kg

DRUGS (5)
  1. TRAZODONE HCL [Concomitant]
     Dates: start: 20111114
  2. INVEGA SUSTENNA [Suspect]
     Indication: SCHIZOPHRENIA
     Route: 030
     Dates: start: 20110929
  3. TRAZODONE HCL [Concomitant]
     Dates: start: 20111012, end: 20111102
  4. TRAZODONE HCL [Concomitant]
     Dates: start: 20111103, end: 20111113
  5. TRAZODONE HCL [Concomitant]
     Indication: INSOMNIA
     Dates: start: 20110928, end: 20111011

REACTIONS (1)
  - PSYCHOTIC DISORDER [None]
